FAERS Safety Report 9456740 (Version 1)
Quarter: 2013Q3

REPORT INFORMATION
  Report Type: Spontaneous
  Country: US (occurrence: US)
  Receive Date: 20130813
  Receipt Date: 20130813
  Transmission Date: 20140515
  Serious: Yes (Other)
  Sender: FDA-Public Use
  Company Number: US-PFIZER INC-2013234073

PATIENT
  Age: 69 Year
  Sex: Male

DRUGS (3)
  1. RAPAMUNE [Suspect]
     Indication: IMMUNOSUPPRESSION
     Dosage: 5 MG, UNK
     Dates: start: 20070802
  2. RAPAMUNE [Suspect]
     Dosage: 1 MG, UNK
     Dates: start: 20091005
  3. RAPAMUNE [Suspect]
     Dosage: 2 MG, UNK
     Dates: start: 20100719

REACTIONS (1)
  - Interstitial lung disease [Unknown]
